FAERS Safety Report 8096140-9 (Version None)
Quarter: 2012Q1

REPORT INFORMATION
  Report Type: 
  Country: None (occurrence: None)
  Receive Date: 20120131
  Receipt Date: 20111026
  Transmission Date: 20120608
  Serious: Yes (Other)
  Sender: FDA-Public Use
  Company Number: JP-GLAXOSMITHKLINE-B0759533A

PATIENT
  Sex: Male

DRUGS (4)
  1. FLIVAS [Concomitant]
     Indication: BENIGN PROSTATIC HYPERPLASIA
     Dosage: 25MG PER DAY
     Route: 048
     Dates: start: 20090630
  2. CARVEDILOL [Concomitant]
     Dosage: 30MG PER DAY
     Route: 048
  3. WARFARIN SODIUM [Concomitant]
     Dosage: 3MG PER DAY
     Route: 048
  4. DUTASTERIDE [Suspect]
     Indication: BENIGN PROSTATIC HYPERPLASIA
     Dosage: .5MG PER DAY
     Route: 048
     Dates: start: 20110705

REACTIONS (6)
  - MALAISE [None]
  - MYOCARDIAL INFARCTION [None]
  - ERECTILE DYSFUNCTION [None]
  - DYSPNOEA [None]
  - OEDEMA PERIPHERAL [None]
  - MOBILITY DECREASED [None]
